FAERS Safety Report 12494304 (Version 1)
Quarter: 2016Q2

REPORT INFORMATION
  Report Type: Spontaneous
  Country: US (occurrence: US)
  Receive Date: 20160623
  Receipt Date: 20160623
  Transmission Date: 20160815
  Serious: Yes (Hospitalization)
  Sender: FDA-Public Use
  Company Number: PHEH2016US015430

PATIENT
  Age: 45 Year
  Sex: Female
  Weight: 47.62 kg

DRUGS (1)
  1. TYKERB [Suspect]
     Active Substance: LAPATINIB DITOSYLATE
     Indication: BREAST CANCER FEMALE
     Dosage: 4 DF, QD (1000 MG PER DAY)
     Route: 048
     Dates: start: 20160330, end: 20160404

REACTIONS (4)
  - Weight decreased [Unknown]
  - Rash generalised [Unknown]
  - Pruritus [Unknown]
  - Decreased appetite [Unknown]

NARRATIVE: CASE EVENT DATE: 20160404
